FAERS Safety Report 22301801 (Version 2)
Quarter: 2023Q2

REPORT INFORMATION
  Report Type: Report from Study
  Country: US (occurrence: US)
  Receive Date: 20230510
  Receipt Date: 20230514
  Transmission Date: 20230721
  Serious: Yes (Other)
  Sender: FDA-Public Use
  Company Number: US-ABBVIE-4757366

PATIENT
  Age: 84 Year
  Sex: Female

DRUGS (4)
  1. IMBRUVICA [Suspect]
     Active Substance: IBRUTINIB
     Indication: Chronic lymphocytic leukaemia
     Dosage: TIME INTERVAL: 0.33333333 DAYS
     Route: 048
     Dates: start: 20211231
  2. IMBRUVICA [Suspect]
     Active Substance: IBRUTINIB
     Indication: Chronic lymphocytic leukaemia
     Dosage: DISCONTINUED IN DEC 2021
     Route: 048
     Dates: start: 20211201
  3. TRULICITY [Concomitant]
     Active Substance: DULAGLUTIDE
     Indication: Product used for unknown indication
  4. TRULICITY [Concomitant]
     Active Substance: DULAGLUTIDE
     Indication: Product used for unknown indication
     Dosage: DOSE INCREASED

REACTIONS (6)
  - Blindness [Unknown]
  - Sialoadenitis [Recovering/Resolving]
  - White blood cell count increased [Recovering/Resolving]
  - Fatigue [Unknown]
  - Loose tooth [Unknown]
  - Dehydration [Unknown]

NARRATIVE: CASE EVENT DATE: 20230401
